FAERS Safety Report 6311155-6 (Version None)
Quarter: 2009Q3

REPORT INFORMATION
  Report Type: 
  Country: None (occurrence: None)
  Receive Date: 20090812
  Receipt Date: 20090729
  Transmission Date: 20100115
  Serious: Yes (Other)
  Sender: FDA-Public Use
  Company Number: 1000008032

PATIENT
  Sex: Female

DRUGS (3)
  1. ESCITALOPRAM [Suspect]
     Indication: ANXIETY
     Dosage: 10 MG (10 MG,  1 IN 1 D), ORAL
     Route: 048
     Dates: start: 20090701, end: 20090701
  2. OLANZAPINE [Concomitant]
  3. DEPO-PROVERA [Concomitant]

REACTIONS (3)
  - CONVULSION [None]
  - DIZZINESS [None]
  - TINNITUS [None]
